FAERS Safety Report 23763102 (Version 3)
Quarter: 2024Q3

REPORT INFORMATION
  Report Type: Spontaneous
  Country: DE (occurrence: DE)
  Receive Date: 20240419
  Receipt Date: 20240730
  Transmission Date: 20241017
  Serious: Yes (Hospitalization, Other)
  Sender: SANDOZ
  Company Number: DE-BRISTOL-MYERS SQUIBB COMPANY-2024-050624

PATIENT
  Age: 83 Year
  Sex: Male

DRUGS (103)
  1. CARBOPLATIN [Suspect]
     Active Substance: CARBOPLATIN
     Indication: Non-small cell lung cancer
     Dosage: 234 MG (ALL 3 WEEKS)
     Route: 042
     Dates: start: 20240318
  2. OPDIVO [Suspect]
     Active Substance: NIVOLUMAB
     Indication: Non-small cell lung cancer
     Dosage: 360 MG (ALL 3 WEEKS)
     Route: 042
     Dates: start: 20240318
  3. YERVOY [Suspect]
     Active Substance: IPILIMUMAB
     Indication: Non-small cell lung cancer
     Dosage: 70 MG (ALL 6 WEEKS)
     Route: 042
     Dates: start: 20240318
  4. CANDESARTAN [Concomitant]
     Active Substance: CANDESARTAN
     Indication: Product used for unknown indication
     Dosage: UNK
     Route: 065
  5. CANDESARTAN [Concomitant]
     Active Substance: CANDESARTAN
     Dosage: UNK
     Route: 065
     Dates: end: 20240405
  6. CANDESARTAN [Concomitant]
     Active Substance: CANDESARTAN
     Dosage: UNK
     Route: 065
     Dates: end: 20240405
  7. CANDESARTAN [Concomitant]
     Active Substance: CANDESARTAN
     Dosage: UNK
     Route: 065
     Dates: end: 20240405
  8. CANDESARTAN [Concomitant]
     Active Substance: CANDESARTAN
     Dosage: UNK
     Route: 065
     Dates: end: 20240405
  9. CANDESARTAN [Concomitant]
     Active Substance: CANDESARTAN
     Dosage: UNK
     Route: 065
     Dates: end: 20240405
  10. CANDESARTAN [Concomitant]
     Active Substance: CANDESARTAN
     Dosage: UNK
     Route: 065
     Dates: end: 20240405
  11. CANDESARTAN [Concomitant]
     Active Substance: CANDESARTAN
     Dosage: UNK
     Route: 065
  12. CANDESARTAN [Concomitant]
     Active Substance: CANDESARTAN
     Dosage: UNK
     Route: 065
  13. DEXAMETHASONE [Concomitant]
     Active Substance: DEXAMETHASONE
     Indication: Prophylaxis
     Dosage: UNK
     Route: 065
     Dates: start: 20240318, end: 20240318
  14. DULOXETINE [Concomitant]
     Active Substance: DULOXETINE
     Indication: Prophylaxis
     Dosage: UNK
     Route: 065
  15. DULOXETINE [Concomitant]
     Active Substance: DULOXETINE
     Dosage: UNK
     Route: 065
  16. DULOXETINE [Concomitant]
     Active Substance: DULOXETINE
     Dosage: UNK
     Route: 065
  17. DULOXETINE [Concomitant]
     Active Substance: DULOXETINE
     Dosage: UNK
     Route: 065
  18. DULOXETINE [Concomitant]
     Active Substance: DULOXETINE
     Dosage: UNK
     Route: 065
  19. DULOXETINE [Concomitant]
     Active Substance: DULOXETINE
     Dosage: UNK
     Route: 065
  20. DULOXETINE [Concomitant]
     Active Substance: DULOXETINE
     Dosage: UNK
     Route: 065
  21. DULOXETINE [Concomitant]
     Active Substance: DULOXETINE
     Dosage: UNK
     Route: 065
  22. DULOXETINE [Concomitant]
     Active Substance: DULOXETINE
     Dosage: UNK
     Route: 065
  23. DULOXETINE [Concomitant]
     Active Substance: DULOXETINE
     Dosage: UNK
     Route: 065
  24. ELIQUIS [Concomitant]
     Active Substance: APIXABAN
     Indication: Product used for unknown indication
     Dosage: UNK
     Route: 065
  25. ELIQUIS [Concomitant]
     Active Substance: APIXABAN
     Dosage: UNK
     Route: 065
  26. ELIQUIS [Concomitant]
     Active Substance: APIXABAN
     Dosage: UNK
     Route: 065
  27. ELIQUIS [Concomitant]
     Active Substance: APIXABAN
     Dosage: UNK
     Route: 065
  28. ELIQUIS [Concomitant]
     Active Substance: APIXABAN
     Dosage: UNK
     Route: 065
  29. ELIQUIS [Concomitant]
     Active Substance: APIXABAN
     Dosage: UNK
     Route: 065
  30. ELIQUIS [Concomitant]
     Active Substance: APIXABAN
     Dosage: UNK
     Route: 065
  31. ELIQUIS [Concomitant]
     Active Substance: APIXABAN
     Dosage: UNK
     Route: 065
  32. ELIQUIS [Concomitant]
     Active Substance: APIXABAN
     Dosage: UNK
     Route: 065
  33. FERROUS GLYCINE SULFATE [Concomitant]
     Active Substance: FERROUS GLYCINE SULFATE
     Indication: Prophylaxis
     Dosage: UNK
     Route: 065
  34. FERROUS GLYCINE SULFATE [Concomitant]
     Active Substance: FERROUS GLYCINE SULFATE
     Dosage: UNK
     Route: 065
     Dates: end: 20240513
  35. FERROUS GLYCINE SULFATE [Concomitant]
     Active Substance: FERROUS GLYCINE SULFATE
     Dosage: UNK
     Route: 065
  36. FERROUS GLYCINE SULFATE [Concomitant]
     Active Substance: FERROUS GLYCINE SULFATE
     Dosage: UNK
     Route: 065
  37. FERROUS GLYCINE SULFATE [Concomitant]
     Active Substance: FERROUS GLYCINE SULFATE
     Dosage: UNK
     Route: 065
  38. FERROUS GLYCINE SULFATE [Concomitant]
     Active Substance: FERROUS GLYCINE SULFATE
     Dosage: UNK
     Route: 065
  39. FERROUS GLYCINE SULFATE [Concomitant]
     Active Substance: FERROUS GLYCINE SULFATE
     Dosage: UNK
     Route: 065
  40. FERROUS GLYCINE SULFATE [Concomitant]
     Active Substance: FERROUS GLYCINE SULFATE
     Dosage: UNK
     Route: 065
  41. FERROUS GLYCINE SULFATE [Concomitant]
     Active Substance: FERROUS GLYCINE SULFATE
     Dosage: UNK
     Route: 065
  42. FERROUS GLYCINE SULFATE [Concomitant]
     Active Substance: FERROUS GLYCINE SULFATE
     Dosage: UNK
     Route: 065
  43. FOSTER [Concomitant]
     Active Substance: BECLOMETHASONE\FORMOTEROL
     Indication: Product used for unknown indication
     Dosage: UNK
     Route: 065
  44. EZETIMIBE\SIMVASTATIN [Concomitant]
     Active Substance: EZETIMIBE\SIMVASTATIN
     Indication: Product used for unknown indication
     Dosage: UNK
     Route: 065
  45. EZETIMIBE\SIMVASTATIN [Concomitant]
     Active Substance: EZETIMIBE\SIMVASTATIN
     Dosage: UNK
     Route: 065
  46. EZETIMIBE\SIMVASTATIN [Concomitant]
     Active Substance: EZETIMIBE\SIMVASTATIN
     Dosage: UNK
     Route: 065
  47. EZETIMIBE\SIMVASTATIN [Concomitant]
     Active Substance: EZETIMIBE\SIMVASTATIN
     Dosage: UNK
     Route: 065
  48. EZETIMIBE\SIMVASTATIN [Concomitant]
     Active Substance: EZETIMIBE\SIMVASTATIN
     Dosage: UNK
     Route: 065
  49. EZETIMIBE\SIMVASTATIN [Concomitant]
     Active Substance: EZETIMIBE\SIMVASTATIN
     Dosage: UNK
     Route: 065
  50. EZETIMIBE\SIMVASTATIN [Concomitant]
     Active Substance: EZETIMIBE\SIMVASTATIN
     Dosage: UNK
     Route: 065
  51. EZETIMIBE\SIMVASTATIN [Concomitant]
     Active Substance: EZETIMIBE\SIMVASTATIN
     Dosage: UNK
     Route: 065
  52. EZETIMIBE\SIMVASTATIN [Concomitant]
     Active Substance: EZETIMIBE\SIMVASTATIN
     Dosage: UNK
     Route: 065
  53. LEVETIRACETAM [Concomitant]
     Active Substance: LEVETIRACETAM
     Indication: Product used for unknown indication
     Dosage: UNKNOWN
     Route: 065
  54. LEVETIRACETAM [Concomitant]
     Active Substance: LEVETIRACETAM
     Indication: Product used for unknown indication
     Dosage: UNK
     Route: 065
  55. LEVETIRACETAM [Concomitant]
     Active Substance: LEVETIRACETAM
     Dosage: UNK
     Route: 065
     Dates: end: 20240328
  56. LEVETIRACETAM [Concomitant]
     Active Substance: LEVETIRACETAM
     Dosage: UNK
     Route: 065
     Dates: end: 20240328
  57. LEVETIRACETAM [Concomitant]
     Active Substance: LEVETIRACETAM
     Dosage: UNK
     Route: 065
     Dates: end: 20240328
  58. LEVETIRACETAM [Concomitant]
     Active Substance: LEVETIRACETAM
     Dosage: UNK
     Route: 065
     Dates: end: 20240328
  59. LEVETIRACETAM [Concomitant]
     Active Substance: LEVETIRACETAM
     Dosage: UNK
     Route: 065
     Dates: end: 20240328
  60. LEVETIRACETAM [Concomitant]
     Active Substance: LEVETIRACETAM
     Dosage: UNK
     Route: 065
     Dates: end: 20240328
  61. LEVETIRACETAM [Concomitant]
     Active Substance: LEVETIRACETAM
     Dosage: UNK
     Route: 065
  62. LEVETIRACETAM [Concomitant]
     Active Substance: LEVETIRACETAM
     Dosage: UNK
     Route: 065
  63. OMEPRAZOLE [Concomitant]
     Active Substance: OMEPRAZOLE
     Indication: Prophylaxis
     Dosage: UNK
     Route: 065
  64. ONDANSETRON [Concomitant]
     Active Substance: ONDANSETRON
     Indication: Prophylaxis
     Dosage: UNK
     Route: 065
     Dates: start: 20240318, end: 20240318
  65. ONDANSETRON [Concomitant]
     Active Substance: ONDANSETRON
     Dosage: UNK
     Route: 065
     Dates: start: 20240318, end: 20240318
  66. ONDANSETRON [Concomitant]
     Active Substance: ONDANSETRON
     Dosage: UNK
     Route: 065
     Dates: start: 20240318, end: 20240318
  67. ONDANSETRON [Concomitant]
     Active Substance: ONDANSETRON
     Dosage: UNK
     Route: 065
     Dates: start: 20240318, end: 20240318
  68. ONDANSETRON [Concomitant]
     Active Substance: ONDANSETRON
     Dosage: UNK
     Route: 065
     Dates: start: 20240318, end: 20240318
  69. ONDANSETRON [Concomitant]
     Active Substance: ONDANSETRON
     Dosage: UNK
     Route: 065
     Dates: start: 20240318, end: 20240318
  70. ONDANSETRON [Concomitant]
     Active Substance: ONDANSETRON
     Dosage: UNK
     Route: 065
     Dates: start: 20240318, end: 20240318
  71. ONDANSETRON [Concomitant]
     Active Substance: ONDANSETRON
     Dosage: UNK
     Route: 065
     Dates: start: 20240318, end: 20240318
  72. ONDANSETRON [Concomitant]
     Active Substance: ONDANSETRON
     Dosage: UNK
     Route: 065
     Dates: start: 20240318, end: 20240318
  73. ONDANSETRON [Concomitant]
     Active Substance: ONDANSETRON
     Dosage: UNK
     Route: 065
     Dates: start: 20240318, end: 20240318
  74. TAMSULOSIN [Concomitant]
     Active Substance: TAMSULOSIN
     Indication: Product used for unknown indication
     Dosage: UNK
     Route: 065
  75. TAMSULOSIN [Concomitant]
     Active Substance: TAMSULOSIN
     Dosage: UNK
     Route: 065
     Dates: end: 20240328
  76. TAMSULOSIN [Concomitant]
     Active Substance: TAMSULOSIN
     Dosage: UNK
     Route: 065
     Dates: end: 20240328
  77. TAMSULOSIN [Concomitant]
     Active Substance: TAMSULOSIN
     Dosage: UNK
     Route: 065
     Dates: end: 20240328
  78. TAMSULOSIN [Concomitant]
     Active Substance: TAMSULOSIN
     Dosage: UNK
     Route: 065
     Dates: end: 20240328
  79. TAMSULOSIN [Concomitant]
     Active Substance: TAMSULOSIN
     Dosage: UNK
     Route: 065
     Dates: end: 20240328
  80. TAMSULOSIN [Concomitant]
     Active Substance: TAMSULOSIN
     Dosage: UNK
     Route: 065
     Dates: end: 20240328
  81. TAMSULOSIN [Concomitant]
     Active Substance: TAMSULOSIN
     Dosage: UNK
     Route: 065
  82. TAMSULOSIN [Concomitant]
     Active Substance: TAMSULOSIN
     Dosage: UNK
     Route: 065
  83. LEVOTHYROXINE SODIUM\POTASSIUM IODIDE [Concomitant]
     Active Substance: LEVOTHYROXINE SODIUM\POTASSIUM IODIDE
     Indication: Product used for unknown indication
     Dosage: UNK
     Route: 065
  84. LEVOTHYROXINE SODIUM\POTASSIUM IODIDE [Concomitant]
     Active Substance: LEVOTHYROXINE SODIUM\POTASSIUM IODIDE
     Dosage: UNK
     Route: 065
  85. LEVOTHYROXINE SODIUM\POTASSIUM IODIDE [Concomitant]
     Active Substance: LEVOTHYROXINE SODIUM\POTASSIUM IODIDE
     Dosage: UNK
     Route: 065
  86. LEVOTHYROXINE SODIUM\POTASSIUM IODIDE [Concomitant]
     Active Substance: LEVOTHYROXINE SODIUM\POTASSIUM IODIDE
     Dosage: UNK
     Route: 065
  87. LEVOTHYROXINE SODIUM\POTASSIUM IODIDE [Concomitant]
     Active Substance: LEVOTHYROXINE SODIUM\POTASSIUM IODIDE
     Dosage: UNK
     Route: 065
  88. LEVOTHYROXINE SODIUM\POTASSIUM IODIDE [Concomitant]
     Active Substance: LEVOTHYROXINE SODIUM\POTASSIUM IODIDE
     Dosage: UNK
     Route: 065
  89. LEVOTHYROXINE SODIUM\POTASSIUM IODIDE [Concomitant]
     Active Substance: LEVOTHYROXINE SODIUM\POTASSIUM IODIDE
     Dosage: UNK
     Route: 065
  90. LEVOTHYROXINE SODIUM\POTASSIUM IODIDE [Concomitant]
     Active Substance: LEVOTHYROXINE SODIUM\POTASSIUM IODIDE
     Dosage: UNK
     Route: 065
  91. LEVOTHYROXINE SODIUM\POTASSIUM IODIDE [Concomitant]
     Active Substance: LEVOTHYROXINE SODIUM\POTASSIUM IODIDE
     Dosage: UNK
     Route: 065
  92. LEVOTHYROXINE SODIUM\POTASSIUM IODIDE [Concomitant]
     Active Substance: LEVOTHYROXINE SODIUM\POTASSIUM IODIDE
     Dosage: UNK
     Route: 065
  93. TORSEMIDE [Concomitant]
     Active Substance: TORSEMIDE
     Indication: Product used for unknown indication
     Dosage: UNK
     Route: 065
  94. TORSEMIDE [Concomitant]
     Active Substance: TORSEMIDE
     Dosage: UNK
     Route: 065
     Dates: start: 20240331, end: 20240514
  95. TORSEMIDE [Concomitant]
     Active Substance: TORSEMIDE
     Dosage: UNK
     Route: 065
     Dates: end: 20240328
  96. TORSEMIDE [Concomitant]
     Active Substance: TORSEMIDE
     Dosage: UNK
     Route: 065
     Dates: end: 20240328
  97. TORSEMIDE [Concomitant]
     Active Substance: TORSEMIDE
     Dosage: UNK
     Route: 065
     Dates: end: 20240328
  98. TORSEMIDE [Concomitant]
     Active Substance: TORSEMIDE
     Dosage: UNK
     Route: 065
     Dates: end: 20240328
  99. TORSEMIDE [Concomitant]
     Active Substance: TORSEMIDE
     Dosage: UNK
     Route: 065
     Dates: end: 20240328
  100. TORSEMIDE [Concomitant]
     Active Substance: TORSEMIDE
     Dosage: UNK
     Route: 065
     Dates: end: 20240328
  101. TORSEMIDE [Concomitant]
     Active Substance: TORSEMIDE
     Dosage: UNK
     Route: 065
     Dates: end: 20240328
  102. TORSEMIDE [Concomitant]
     Active Substance: TORSEMIDE
     Dosage: UNK
     Route: 065
  103. TORSEMIDE [Concomitant]
     Active Substance: TORSEMIDE
     Dosage: UNK
     Route: 065

REACTIONS (5)
  - Hyperkalaemia [Recovered/Resolved]
  - Pancytopenia [Recovering/Resolving]
  - Leukopenia [Recovered/Resolved]
  - Thrombocytopenia [Recovering/Resolving]
  - Cough [Not Recovered/Not Resolved]

NARRATIVE: CASE EVENT DATE: 20240327
